FAERS Safety Report 5497273-3 (Version None)
Quarter: 2007Q4

REPORT INFORMATION
  Report Type: 
  Country: None (occurrence: None)
  Receive Date: 20071025
  Receipt Date: 20061012
  Transmission Date: 20080405
  Serious: No
  Sender: FDA-Public Use
  Company Number: A0621050A

PATIENT
  Age: 56 Year
  Sex: Male
  Weight: 89.1 kg

DRUGS (8)
  1. ADVAIR DISKUS 100/50 [Suspect]
     Indication: ASTHMA
     Dosage: 1PUFF TWICE PER DAY
     Route: 055
  2. SPIRIVA [Suspect]
     Indication: DRUG USE FOR UNKNOWN INDICATION
  3. ALBUTEROL [Suspect]
     Indication: DRUG USE FOR UNKNOWN INDICATION
  4. FISH OIL [Concomitant]
  5. SAW PALMETTO [Concomitant]
  6. ASCORBIC ACID [Concomitant]
  7. ASPIRIN [Concomitant]
  8. AZMACORT [Concomitant]

REACTIONS (4)
  - FEELING JITTERY [None]
  - INCORRECT DOSE ADMINISTERED [None]
  - NAUSEA [None]
  - NERVOUSNESS [None]
